FAERS Safety Report 4608577-8 (Version None)
Quarter: 2005Q1

REPORT INFORMATION
  Report Type: 
  Country: None (occurrence: None)
  Receive Date: 20050315
  Receipt Date: 20050302
  Transmission Date: 20050727
  Serious: Yes (Hospitalization, Other)
  Sender: FDA-Public Use
  Company Number: DE-JNJFOC-20040305908

PATIENT
  Age: 73 Year
  Sex: Female
  Weight: 54 kg

DRUGS (8)
  1. CAELYX [Suspect]
     Route: 042
  2. CAELYX [Suspect]
     Route: 042
  3. CAELYX [Suspect]
     Route: 042
  4. CARBOPLATIN [Suspect]
     Dosage: AUC4
     Route: 042
  5. CARBOPLATIN [Suspect]
     Dosage: 226 MG (AUC5)
     Route: 042
  6. CARBOPLATIN [Suspect]
     Dosage: 374 MG (AUC5)
     Route: 042
  7. CARBOPLATIN [Suspect]
     Dosage: 390 MG (AUC6)
     Route: 042
  8. CARBOPLATIN [Suspect]
     Dosage: 480 MG (AUC6)
     Route: 042

REACTIONS (5)
  - ANAEMIA [None]
  - BLOOD CREATININE INCREASED [None]
  - ENDOMETRIAL CANCER [None]
  - MALIGNANT NEOPLASM PROGRESSION [None]
  - URINARY RETENTION [None]
